FAERS Safety Report 11636984 (Version 1)
Quarter: 2015Q4

REPORT INFORMATION
  Report Type: Spontaneous
  Country: US (occurrence: None)
  Receive Date: 20151015
  Receipt Date: 20151015
  Transmission Date: 20160304
  Serious: Yes (Other)
  Sender: FDA-Public Use
  Company Number: None

PATIENT
  Age: 62 Year
  Sex: Male
  Weight: 92.08 kg

DRUGS (1)
  1. ETODOLAC 200MG NDC 51672401601 [Suspect]
     Active Substance: ETODOLAC
     Indication: BACK PAIN
     Route: 048
     Dates: start: 20150912, end: 20151004

REACTIONS (2)
  - No reaction on previous exposure to drug [None]
  - Diarrhoea [None]

NARRATIVE: CASE EVENT DATE: 20150912
